FAERS Safety Report 5693274-0 (Version None)
Quarter: 2008Q2

REPORT INFORMATION
  Report Type: 
  Country: None (occurrence: None)
  Receive Date: 20080402
  Receipt Date: 20080402
  Transmission Date: 20081010
  Serious: Yes (Disabling)
  Sender: FDA-Public Use
  Company Number: None

PATIENT
  Age: 50 Year
  Sex: Male
  Weight: 136.0791 kg

DRUGS (2)
  1. ASMANEX TWISTHALER [Suspect]
     Dosage: ONE PER DAY EVERY DAY
  2. ASMANEX TWISTHALER [Concomitant]

REACTIONS (4)
  - DEVICE FAILURE [None]
  - DEVICE MALFUNCTION [None]
  - INCORRECT DOSE ADMINISTERED [None]
  - PHARMACEUTICAL PRODUCT COMPLAINT [None]
